FAERS Safety Report 7992495 (Version 2)
Quarter: 2012Q4

REPORT INFORMATION
  Report Type: 
  Country: CA (occurrence: CA)
  Receive Date: 20110615
  Receipt Date: 20121106
  Transmission Date: 20130627
  Serious: Yes (Other)
  Sender: FDA-Public Use
  Company Number: PHHY2007CA01012

PATIENT
  Sex: Female

DRUGS (1)
  1. SANDOSTATIN LAR [Suspect]
     Indication: ACROMEGALY
     Dosage: 30 mg, every 6 weeks
     Route: 030
     Dates: start: 19990801, end: 20071219

REACTIONS (13)
  - Menstruation irregular [Recovered/Resolved]
  - Malignant pituitary tumour [Unknown]
  - Pallor [Recovering/Resolving]
  - Ocular icterus [Recovered/Resolved]
  - Thirst [Unknown]
  - Pollakiuria [Unknown]
  - Extrasystoles [Unknown]
  - Muscle strain [Unknown]
  - Increased upper airway secretion [Recovering/Resolving]
  - Bradycardia [Unknown]
  - Rash [Recovered/Resolved]
  - Feeling hot [Recovered/Resolved]
  - Fatigue [Recovering/Resolving]
